FAERS Safety Report 12827858 (Version 3)
Quarter: 2016Q4

REPORT INFORMATION
  Report Type: Report from Study
  Country: US (occurrence: US)
  Receive Date: 20161006
  Receipt Date: 20161116
  Transmission Date: 20170207
  Serious: Yes (Other)
  Sender: FDA-Public Use
  Company Number: US-AMGEN-USASL2016135984

PATIENT
  Age: 29 Year
  Sex: Male

DRUGS (1)
  1. ENBREL [Suspect]
     Active Substance: ETANERCEPT
     Indication: PSORIASIS
     Dosage: 50 MG, 2 TIMES/WK
     Route: 065
     Dates: end: 20160928

REACTIONS (4)
  - Musculoskeletal stiffness [Recovered/Resolved]
  - Skin sensitisation [Recovering/Resolving]
  - Arthralgia [Recovered/Resolved]
  - Dermatitis bullous [Recovered/Resolved]
